FAERS Safety Report 8926660 (Version 1)
Quarter: 2012Q4

REPORT INFORMATION
  Report Type: Report from Study
  Country: JP (occurrence: JP)
  Receive Date: 20121127
  Receipt Date: 20121127
  Transmission Date: 20130627
  Serious: Yes (Other)
  Sender: FDA-Public Use
  Company Number: JP-VERTEX PHARMACEUTICAL INC.-AE-2012-009415

PATIENT
  Age: 65 Year
  Sex: Male

DRUGS (11)
  1. VX-950 (TELAPREVIR) [Suspect]
     Indication: CHRONIC HEPATITIS C
     Dosage: 2250 mg, qd
     Route: 048
     Dates: start: 20120305, end: 20120528
  2. RIBAVIRIN [Suspect]
     Indication: CHRONIC HEPATITIS C
     Dosage: 800 mg, qd
     Route: 048
     Dates: start: 20120305, end: 20120401
  3. RIBAVIRIN [Suspect]
     Dosage: 600 mg, qd
     Route: 048
     Dates: start: 20120402, end: 20120415
  4. RIBAVIRIN [Suspect]
     Dosage: 400 mg, qd
     Route: 048
     Dates: start: 20120416
  5. PEGINTERFERON ALFA-2B [Suspect]
     Indication: CHRONIC HEPATITIS C
     Dosage: 1.5 ?g/kg, qw
     Route: 058
     Dates: start: 20120305, end: 20120507
  6. PEGINTERFERON ALFA-2B [Suspect]
     Dosage: 0.75 ?g/kg, qw
     Route: 058
     Dates: start: 20120514
  7. LOXONIN [Concomitant]
     Route: 048
     Dates: start: 20120310
  8. MUCOSTA [Concomitant]
     Dosage: 100 mg, qd
     Route: 048
     Dates: start: 20120310, end: 20120423
  9. BIOFERMIN                          /01617201/ [Concomitant]
     Dosage: 3 g, qd
     Route: 048
     Dates: start: 20120310, end: 20120423
  10. PRIMPERAN [Concomitant]
     Dosage: 15 mg, qd
     Route: 048
     Dates: start: 20120310, end: 20120315
  11. MYSER                              /01249201/ [Concomitant]
     Dosage: UNK UNK, prn
     Route: 061
     Dates: start: 20120309

REACTIONS (1)
  - Neutrophil count decreased [Recovered/Resolved]
